FAERS Safety Report 8610529-8 (Version None)
Quarter: 2012Q3

REPORT INFORMATION
  Report Type: 
  Country: None (occurrence: None)
  Receive Date: 20120822
  Receipt Date: 20120813
  Transmission Date: 20120928
  Serious: Yes (Other)
  Sender: FDA-Public Use
  Company Number: CA-JNJFOC-20120806517

PATIENT
  Sex: Female

DRUGS (5)
  1. ZOLOFT [Concomitant]
     Route: 065
  2. IBUPROFEN [Concomitant]
     Route: 065
  3. REMICADE [Suspect]
     Indication: RHEUMATOID ARTHRITIS
     Route: 042
     Dates: start: 20061001
  4. FOLIC ACID [Concomitant]
     Route: 048
  5. SYNTHROID [Concomitant]
     Route: 065

REACTIONS (4)
  - BACK PAIN [None]
  - ANKLE FRACTURE [None]
  - SYNCOPE [None]
  - FALL [None]
